FAERS Safety Report 24260487 (Version 1)
Quarter: 2024Q3

REPORT INFORMATION
  Report Type: Spontaneous
  Country: US (occurrence: US)
  Receive Date: 20240828
  Receipt Date: 20240828
  Transmission Date: 20241017
  Serious: No
  Sender: KOWA PHARM
  Company Number: US-KOWA-24US000145

PATIENT

DRUGS (3)
  1. LIVALO [Suspect]
     Active Substance: PITAVASTATIN CALCIUM
     Indication: Blood cholesterol abnormal
     Dosage: 4 MG, QD
     Dates: start: 20231114
  2. AMLODIPINE MESILATE;HYDROCHLOROTHIAZIDE;VALSARTAN [Concomitant]
     Indication: Product used for unknown indication
     Dosage: UNK
  3. TERAZOSIN [Concomitant]
     Active Substance: TERAZOSIN HYDROCHLORIDE
     Indication: Product used for unknown indication
     Dosage: UNK

REACTIONS (1)
  - Myalgia [Unknown]
